FAERS Safety Report 8373415-7 (Version None)
Quarter: 2012Q2

REPORT INFORMATION
  Report Type: 
  Country: None (occurrence: None)
  Receive Date: 20120521
  Receipt Date: 20120213
  Transmission Date: 20120825
  Serious: No
  Sender: FDA-Public Use
  Company Number: US-TEVA-2011005580

PATIENT

DRUGS (2)
  1. TREANDA [Suspect]
     Indication: LYMPHOMA
     Dosage: MG/M2, 145 MG
     Route: 042
     Dates: start: 20110816, end: 20120104
  2. RITUXIMAB [Concomitant]

REACTIONS (1)
  - HEPATIC ENZYME INCREASED [None]
